FAERS Safety Report 14119807 (Version 1)
Quarter: 2017Q4

REPORT INFORMATION
  Report Type: Report from Study
  Country: GB (occurrence: GB)
  Receive Date: 20171024
  Receipt Date: 20171024
  Transmission Date: 20180321
  Serious: Yes (Death)
  Sender: FDA-Public Use
  Company Number: GB-CIPLA LTD.-2017GB18830

PATIENT

DRUGS (2)
  1. GEMCITABINE [Suspect]
     Active Substance: GEMCITABINE\GEMCITABINE HYDROCHLORIDE
     Indication: SARCOMA METASTATIC
     Dosage: 675 MG/M2 ON DAYS 1 AND 8, EVERY 3 WEEKS
     Route: 042
  2. DOCETAXEL. [Suspect]
     Active Substance: DOCETAXEL
     Indication: SARCOMA METASTATIC
     Dosage: 75 MG/M2 ON DAY 8, EVERY 3 WEEKS
     Route: 042

REACTIONS (1)
  - Disease progression [Fatal]
